FAERS Safety Report 12009601 (Version 1)
Quarter: 2016Q1

REPORT INFORMATION
  Report Type: Spontaneous
  Country: US (occurrence: None)
  Receive Date: 20160204
  Receipt Date: 20160204
  Transmission Date: 20160526
  Serious: Yes (Hospitalization)
  Sender: FDA-Public Use
  Company Number: None

PATIENT
  Age: 58 Year
  Sex: Male
  Weight: 133.81 kg

DRUGS (3)
  1. LIPOZENE [Suspect]
     Active Substance: KONJAC MANNAN
  2. CYVITA CFSAN N/A N/A [Suspect]
     Active Substance: DIETARY SUPPLEMENT
  3. LISINOPRIL. [Suspect]
     Active Substance: LISINOPRIL

REACTIONS (3)
  - Chest discomfort [None]
  - Asthenia [None]
  - Dizziness [None]

NARRATIVE: CASE EVENT DATE: 20160203
